FAERS Safety Report 22247074 (Version 1)
Quarter: 2023Q2

REPORT INFORMATION
  Report Type: Report from Study
  Country: HU (occurrence: HU)
  Receive Date: 20230424
  Receipt Date: 20230424
  Transmission Date: 20230722
  Serious: Yes (Life-Threatening, Hospitalization)
  Sender: FDA-Public Use
  Company Number: HU-BAXTER-2014BAX000614

PATIENT
  Age: 4 Year
  Sex: Male
  Weight: 15 kg

DRUGS (18)
  1. ADVATE [Suspect]
     Active Substance: ANTIHEMOPHILIC FACTOR, HUMAN RECOMBINANT
     Indication: Factor VIII deficiency
     Dosage: 500 INTERNATIONAL UNIT, 3/WEEK
     Route: 042
     Dates: start: 20110617
  2. ADVATE [Suspect]
     Active Substance: ANTIHEMOPHILIC FACTOR, HUMAN RECOMBINANT
     Indication: Factor VIII deficiency
     Dosage: 500 INTERNATIONAL UNIT, 3/WEEK
     Route: 042
     Dates: start: 20110617
  3. ADVATE [Suspect]
     Active Substance: ANTIHEMOPHILIC FACTOR, HUMAN RECOMBINANT
     Indication: Factor VIII deficiency
     Dosage: 500 INTERNATIONAL UNIT, 3/WEEK
     Route: 042
     Dates: start: 20110617
  4. ADVATE [Suspect]
     Active Substance: ANTIHEMOPHILIC FACTOR, HUMAN RECOMBINANT
     Indication: Prophylaxis
     Dosage: 500 IU, 2 DOSE
     Route: 042
     Dates: start: 20131231, end: 20131231
  5. ADVATE [Suspect]
     Active Substance: ANTIHEMOPHILIC FACTOR, HUMAN RECOMBINANT
     Indication: Prophylaxis
     Dosage: 500 IU, 2 DOSE
     Route: 042
     Dates: start: 20131231, end: 20131231
  6. ADVATE [Suspect]
     Active Substance: ANTIHEMOPHILIC FACTOR, HUMAN RECOMBINANT
     Indication: Prophylaxis
     Dosage: 500 IU, 2 DOSE
     Route: 042
     Dates: start: 20131231, end: 20131231
  7. CLARITHROMYCIN [Concomitant]
     Active Substance: CLARITHROMYCIN
     Indication: Cough
     Dosage: 125 MILLIGRAM, BID
     Dates: start: 20130524, end: 20130528
  8. CLARITHROMYCIN [Concomitant]
     Active Substance: CLARITHROMYCIN
     Indication: Obstructive airways disorder
  9. CEPHALOSPORIN C [Concomitant]
     Active Substance: CEPHALOSPORIN C
     Indication: Upper respiratory tract infection
     Dosage: UNK UNK, QD
     Dates: start: 20120222, end: 20120226
  10. Brulamycin [Concomitant]
     Indication: Conjunctivitis
     Dosage: UNK UNK, BID
     Dates: start: 20150430, end: 20150504
  11. TOBREX [Concomitant]
     Active Substance: TOBRAMYCIN
     Indication: Conjunctivitis
     Dosage: UNK
     Dates: start: 20150424, end: 20150430
  12. Pimafucort [Concomitant]
     Indication: Nasal injury
     Dosage: UNK, TID
     Dates: start: 20151116, end: 20151118
  13. RINOPANTEINA [Concomitant]
     Indication: Epistaxis
     Dosage: UNK, BID
     Dates: start: 20150430, end: 20150502
  14. RINOPANTEINA [Concomitant]
     Dosage: UNK, TID
     Dates: start: 20160405, end: 20160411
  15. TRANEXAMIC ACID [Concomitant]
     Active Substance: TRANEXAMIC ACID
     Indication: Epistaxis
     Dosage: 500 MILLIGRAM, TID
     Dates: start: 20150430, end: 20150501
  16. CLINDAMYCIN [Concomitant]
     Active Substance: CLINDAMYCIN
     Indication: Periodontitis
     Dosage: 300 MILLIGRAM, TID
     Dates: start: 20161007, end: 20161010
  17. Dalacin [Concomitant]
     Indication: Periodontitis
     Dosage: 150 MILLIGRAM, QD
     Dates: start: 20161010, end: 20161015
  18. OSPEN 750 [Concomitant]
     Indication: Lymphadenitis
     Dosage: 1000000 INTERNATIONAL UNIT, BID
     Dates: start: 20160513, end: 20160517

REACTIONS (1)
  - Head injury [Recovered/Resolved]

NARRATIVE: CASE EVENT DATE: 20140101
